FAERS Safety Report 6111411-0 (Version None)
Quarter: 2009Q1

REPORT INFORMATION
  Report Type: 
  Country: None (occurrence: None)
  Receive Date: 20090309
  Receipt Date: 20090226
  Transmission Date: 20090719
  Serious: Yes (Disabling, Other)
  Sender: FDA-Public Use
  Company Number: 2009-JP000310

PATIENT
  Age: 82 Year
  Sex: Female
  Weight: 60.5 kg

DRUGS (9)
  1. VESICARE [Suspect]
     Indication: HYPERTONIC BLADDER
     Dosage: 2.5 MG, BID, ORAL
     Route: 048
     Dates: start: 20081107, end: 20090118
  2. CERCINE TABLET [Concomitant]
  3. GASMOTIN (MOSAPRIDE CITRATE) TABLET [Concomitant]
  4. MAGLAX (MAGNESIUM OXIDE) TABLET [Concomitant]
  5. ABILIT [Concomitant]
  6. CANDESARTAN CILEXETIL [Concomitant]
  7. LIVALO (ITAVASTATIN CALCIUM) [Concomitant]
  8. PARIET (RABEPRAZOLE SODIUM) TABLET [Concomitant]
  9. LUVOX [Concomitant]

REACTIONS (4)
  - FALL [None]
  - MOVEMENT DISORDER [None]
  - NEUROGENIC BLADDER [None]
  - RENAL FAILURE ACUTE [None]
